FAERS Safety Report 5670982-9 (Version None)
Quarter: 2008Q1

REPORT INFORMATION
  Report Type: 
  Country: None (occurrence: None)
  Receive Date: 20080313
  Receipt Date: 20080228
  Transmission Date: 20080703
  Serious: Yes (Other)
  Sender: FDA-Public Use
  Company Number: 2008BI006103

PATIENT
  Age: 1 Day
  Sex: Male

DRUGS (1)
  1. AVONEX [Suspect]
     Indication: MULTIPLE SCLEROSIS
     Dosage: 30 UG; QW; TRPL
     Route: 064
     Dates: start: 19990101

REACTIONS (6)
  - CAESAREAN SECTION [None]
  - CARDIAC SEPTAL DEFECT [None]
  - CONGENITAL ANOMALY [None]
  - TRANSMISSION OF DRUG VIA SEMEN [None]
  - TWIN PREGNANCY [None]
  - VISUAL DISTURBANCE [None]
